FAERS Safety Report 8066141-5 (Version None)
Quarter: 2012Q1

REPORT INFORMATION
  Report Type: 
  Country: None (occurrence: None)
  Receive Date: 20120124
  Receipt Date: 20120120
  Transmission Date: 20120608
  Serious: Yes (Hospitalization)
  Sender: FDA-Public Use
  Company Number: ES-ROCHE-728064

PATIENT
  Sex: Female
  Weight: 49 kg

DRUGS (8)
  1. AVASTIN [Suspect]
     Indication: BREAST CANCER
     Dosage: DOSE: 765 MG.
     Route: 042
     Dates: start: 20091228, end: 20100824
  2. ACETYLSALICYLIC ACID SRT [Concomitant]
     Dates: start: 20070101, end: 20100915
  3. AVASTIN [Suspect]
     Route: 042
  4. ACETAMINOPHEN [Concomitant]
  5. AVASTIN [Suspect]
     Route: 042
  6. LETROZOLE [Suspect]
     Indication: BREAST CANCER
     Dosage: LAST DOSE PRIOR TO SAE: 14 SEPTEMBER 2010.
     Route: 048
  7. FENTANYL [Concomitant]
  8. ZOLEDRONOC ACID [Suspect]
     Indication: PRODUCT USED FOR UNKNOWN INDICATION
     Dates: start: 20100726, end: 20100816

REACTIONS (1)
  - RENAL FAILURE [None]
